FAERS Safety Report 6956822-6 (Version None)
Quarter: 2010Q3

REPORT INFORMATION
  Report Type: 
  Country: None (occurrence: None)
  Receive Date: 20100826
  Receipt Date: 20100820
  Transmission Date: 20110219
  Serious: Yes (Life-Threatening)
  Sender: FDA-Public Use
  Company Number: URSO-2010-096

PATIENT
  Sex: Male

DRUGS (5)
  1. URSODIOL [Suspect]
     Indication: HERPES VIRUS INFECTION
     Dosage: 300 MG
     Route: 048
     Dates: start: 20100620, end: 20100720
  2. RISPERDONE [Suspect]
     Indication: SCHIZOPHRENIA
     Dosage: 1 MG, ORAL
     Route: 048
     Dates: start: 20100506, end: 20100720
  3. EVAMYL (LORMETAZEPAM) [Suspect]
     Indication: SCHIZOPHRENIA
     Dosage: 1 MG, ORAL
     Route: 048
     Dates: start: 20100301, end: 20100720
  4. ALDACTONE [Suspect]
     Indication: ASCITES
     Dosage: 25 MG, ORAL
     Route: 048
     Dates: start: 20100525, end: 20100720
  5. ZANTAC [Suspect]
     Indication: GASTRIC ULCER
     Dosage: 300 MG, ORAL
     Route: 048
     Dates: start: 20100602, end: 20100720

REACTIONS (8)
  - ANAEMIA [None]
  - ASCITES [None]
  - BLOOD ALBUMIN DECREASED [None]
  - CYTOMEGALOVIRUS TEST POSITIVE [None]
  - GASTRIC ULCER [None]
  - LIVER DISORDER [None]
  - MELAENA [None]
  - SIMPLEX VIRUS TEST POSITIVE [None]
